FAERS Safety Report 5765935-6 (Version None)
Quarter: 2008Q2

REPORT INFORMATION
  Report Type: 
  Country: None (occurrence: None)
  Receive Date: 20080611
  Receipt Date: 20070827
  Transmission Date: 20081010
  Serious: No
  Sender: FDA-Public Use
  Company Number: US-BRISTOL-MYERS SQUIBB COMPANY-13919113

PATIENT
  Age: 84 Year
  Sex: Female

DRUGS (1)
  1. SINEMET [Suspect]
     Indication: TREMOR
     Dosage: 1DOSAGE FORM = 50/200 MG
     Route: 048
     Dates: start: 20050101

REACTIONS (2)
  - DIARRHOEA [None]
  - SOMNOLENCE [None]
